FAERS Safety Report 20527342 (Version 1)
Quarter: 2022Q1

REPORT INFORMATION
  Report Type: Spontaneous
  Country: AU (occurrence: AU)
  Receive Date: 20220228
  Receipt Date: 20220228
  Transmission Date: 20220423
  Serious: Yes (Other)
  Sender: FDA-Public Use
  Company Number: AU-TASMAN PHARMA, INC.-2022TSM00027

PATIENT
  Age: 40 Year
  Sex: Female

DRUGS (3)
  1. CLOZAPINE [Suspect]
     Active Substance: CLOZAPINE
     Route: 065
  2. LITHIUM [Suspect]
     Active Substance: LITHIUM
     Route: 065
  3. VALPROATE [Suspect]
     Active Substance: VALPROIC ACID
     Route: 065

REACTIONS (1)
  - Encephalitis autoimmune [Recovered/Resolved]
